FAERS Safety Report 7885937-3 (Version None)
Quarter: 2011Q4

REPORT INFORMATION
  Report Type: 
  Country: None (occurrence: None)
  Receive Date: 20111102
  Receipt Date: 20110705
  Transmission Date: 20120403
  Serious: No
  Sender: FDA-Public Use
  Company Number: US-AMGEN-USASP2010007343

PATIENT
  Age: 49 Year
  Sex: Female

DRUGS (4)
  1. PLAQUENIL [Concomitant]
     Dates: start: 20080101
  2. METHOTREXATE [Concomitant]
     Dates: start: 20080101
  3. ENBREL [Suspect]
     Indication: RHEUMATOID ARTHRITIS
     Dosage: 50 MG, 2 TIMES/WK
     Dates: start: 20080925, end: 20100901
  4. ENBREL [Suspect]
     Indication: STILL'S DISEASE ADULT ONSET

REACTIONS (8)
  - COUGH [None]
  - RHEUMATOID ARTHRITIS [None]
  - NASOPHARYNGITIS [None]
  - MOBILITY DECREASED [None]
  - ASTHMA [None]
  - INJECTION SITE PAIN [None]
  - LOWER RESPIRATORY TRACT INFECTION [None]
  - INJECTION SITE NODULE [None]
